FAERS Safety Report 5199481-8 (Version None)
Quarter: 2006Q4

REPORT INFORMATION
  Report Type: 
  Country: None (occurrence: None)
  Receive Date: 20061229
  Receipt Date: 20061218
  Transmission Date: 20070319
  Serious: Yes (Hospitalization, Other)
  Sender: FDA-Public Use
  Company Number: 2006US-04981

PATIENT
  Age: 58 Year
  Sex: Female

DRUGS (2)
  1. OPIUM TINCTURE(OPIUM TINCTURE) SOLUTION, 10 MG/ML [Suspect]
     Indication: CROHN'S DISEASE
     Dosage: 10 MG/ML, 30 DROPS 5X PER DAY
     Dates: start: 20060101, end: 20061027
  2. NEXIUM [Concomitant]

REACTIONS (3)
  - COLOSTOMY [None]
  - DYSGEUSIA [None]
  - NAUSEA [None]
